FAERS Safety Report 14213719 (Version 1)
Quarter: 2017Q4

REPORT INFORMATION
  Report Type: Report from Study
  Country: US (occurrence: US)
  Receive Date: 20171122
  Receipt Date: 20171122
  Transmission Date: 20180321
  Serious: Yes (Other)
  Sender: FDA-Public Use
  Company Number: US-PFIZER INC-2017500145

PATIENT
  Age: 14 Year
  Sex: Male
  Weight: 54.5 kg

DRUGS (8)
  1. CEFTRIAXONE. [Concomitant]
     Active Substance: CEFTRIAXONE
     Indication: STREPTOCOCCUS TEST POSITIVE
  2. PENICILLIN [Concomitant]
     Active Substance: PENICILLIN
     Indication: MENINGITIS PNEUMOCOCCAL
     Dosage: UNK
  3. VANCOMYCIN HCL [Suspect]
     Active Substance: VANCOMYCIN HYDROCHLORIDE
     Indication: MENINGITIS PNEUMOCOCCAL
     Dosage: 1000 MG, (18 MG/KG PER DOSE)OVER 90 MINUTES EVERY 6 HOURS
     Route: 042
  4. CEFTRIAXONE. [Concomitant]
     Active Substance: CEFTRIAXONE
     Indication: MENINGITIS PNEUMOCOCCAL
     Dosage: 1000 MG, 2X/DAY (EVERY 12 HOURS)
     Route: 042
  5. PENICILLIN [Concomitant]
     Active Substance: PENICILLIN
     Indication: STREPTOCOCCUS TEST POSITIVE
  6. VANCOMYCIN HCL [Suspect]
     Active Substance: VANCOMYCIN HYDROCHLORIDE
     Indication: STREPTOCOCCUS TEST POSITIVE
     Dosage: 1250 MG,(DOSE INCREASE)(23 MG/KG PER DOSE) IV EVERY 6 HOURS
     Route: 042
  7. VANCOMYCIN HCL [Suspect]
     Active Substance: VANCOMYCIN HYDROCHLORIDE
     Dosage: 1100 MG, (DOSE DECREASED) (20 MG/KG PER DOSE) EVERY 6 HOURS
     Route: 042
  8. VANCOMYCIN HCL [Suspect]
     Active Substance: VANCOMYCIN HYDROCHLORIDE
     Dosage: 1000 MG, (18.4 MG/KG PER DOSE) EVERY 12 HOURS
     Route: 042

REACTIONS (3)
  - Product use issue [Unknown]
  - Acute kidney injury [Recovered/Resolved]
  - Drug level increased [Unknown]
